FAERS Safety Report 5533022-8 (Version None)
Quarter: 2007Q4

REPORT INFORMATION
  Report Type: 
  Country: None (occurrence: None)
  Receive Date: 20071204
  Receipt Date: 20071120
  Transmission Date: 20080405
  Serious: Yes (Life-Threatening, Hospitalization, Other)
  Sender: FDA-Public Use
  Company Number: GB-RANBAXY-2007RR-11629

PATIENT

DRUGS (3)
  1. ENALAPRIL MALEATE 5MG TABLETS [Suspect]
     Indication: PROTEINURIA
     Dosage: 5 MG, QD
     Route: 048
     Dates: start: 20030701, end: 20031201
  2. ALFACALCIDOL [Concomitant]
     Indication: RENAL FAILURE CHRONIC
     Dosage: 250 NG, UNK
     Route: 065
     Dates: start: 20031201
  3. RANITIDINE 75 MG TABLETS [Concomitant]
     Dosage: 75 MG, UNK
     Route: 065
     Dates: start: 20031201

REACTIONS (3)
  - NAUSEA [None]
  - TUBULOINTERSTITIAL NEPHRITIS [None]
  - VOMITING [None]
